FAERS Safety Report 18251069 (Version 2)
Quarter: 2025Q4

REPORT INFORMATION
  Report Type: Spontaneous
  Country: US (occurrence: US)
  Receive Date: 20200910
  Receipt Date: 20251128
  Transmission Date: 20260117
  Serious: Yes (Hospitalization)
  Sender: AUROBINDO
  Company Number: US-APOTEX-2012AP000129

PATIENT
  Age: 58 Year
  Sex: Male

DRUGS (5)
  1. MIRTAZAPINE [Suspect]
     Active Substance: MIRTAZAPINE
     Indication: Schizoaffective disorder
     Dosage: 15 MILLIGRAM, ONCE A DAY
     Route: 065
  2. DIVALPROEX SODIUM [Concomitant]
     Active Substance: DIVALPROEX SODIUM
     Indication: Schizoaffective disorder
     Dosage: 1500 MILLIGRAM
     Route: 065
  3. OLANZAPINE [Concomitant]
     Active Substance: OLANZAPINE
     Indication: Schizoaffective disorder
     Dosage: 20 MILLIGRAM
     Route: 065
  4. CLONAZEPAM [Concomitant]
     Active Substance: CLONAZEPAM
     Indication: Schizoaffective disorder
     Dosage: 2.5 MILLIGRAM
     Route: 065
  5. RISPERIDONE [Concomitant]
     Active Substance: RISPERIDONE
     Indication: Schizoaffective disorder
     Dosage: 6 MILLIGRAM
     Route: 065

REACTIONS (4)
  - Pancytopenia [Recovered/Resolved]
  - Cough [Unknown]
  - Pyrexia [Unknown]
  - Influenza like illness [Unknown]
